FAERS Safety Report 8055715-3 (Version None)
Quarter: 2011Q4

REPORT INFORMATION
  Report Type: 
  Country: None (occurrence: None)
  Receive Date: 20111219
  Receipt Date: 20110307
  Transmission Date: 20120403
  Serious: Yes (Hospitalization)
  Sender: FDA-Public Use
  Company Number: WAES 1103USA01245

PATIENT
  Age: 71 Year
  Sex: Male

DRUGS (10)
  1. CIALIS [Concomitant]
  2. CLARITIN [Concomitant]
  3. MUCINEX [Concomitant]
  4. JANUVIA [Suspect]
     Indication: DIABETES MELLITUS
     Dosage: 100 MG/DAILY/PO
     Route: 048
     Dates: start: 20080801, end: 20110307
  5. IBUPROFEN [Concomitant]
  6. METFORMIN HCL [Concomitant]
  7. ASPIRIN [Concomitant]
  8. PRANDIN [Concomitant]
  9. ZOCOR [Concomitant]
  10. LISINOPRIL [Concomitant]

REACTIONS (1)
  - PANCREATITIS [None]
